FAERS Safety Report 12114938 (Version 1)
Quarter: 2016Q1

REPORT INFORMATION
  Report Type: Spontaneous
  Country: US (occurrence: US)
  Receive Date: 20160225
  Receipt Date: 20160225
  Transmission Date: 20160526
  Serious: No
  Sender: FDA-Public Use
  Company Number: US-SHIRE-US201601992

PATIENT
  Age: 74 Year
  Sex: Female
  Weight: 92.97 kg

DRUGS (3)
  1. PENTASA [Suspect]
     Active Substance: MESALAMINE
     Indication: CROHN^S DISEASE
  2. PENTASA [Suspect]
     Active Substance: MESALAMINE
     Indication: COLITIS ULCERATIVE
     Dosage: UNK UNK, UNKNOWN
     Route: 048
     Dates: end: 201512
  3. PENTASA [Suspect]
     Active Substance: MESALAMINE
     Indication: ILEAL ULCER
     Dosage: 500 MG, 4X/DAY:QID
     Route: 048

REACTIONS (3)
  - Abdominal pain upper [Unknown]
  - Drug dose omission [Recovered/Resolved]
  - Gastrointestinal disorder [Unknown]

NARRATIVE: CASE EVENT DATE: 201512
